FAERS Safety Report 13914518 (Version 2)
Quarter: 2018Q1

REPORT INFORMATION
  Report Type: Report from Study
  Country: US (occurrence: US)
  Receive Date: 20170828
  Receipt Date: 20180126
  Transmission Date: 20180508
  Serious: Yes (Other)
  Sender: FDA-Public Use
  Company Number: PHEH2017US027328

PATIENT
  Age: 58 Year
  Sex: Female
  Weight: 51.25 kg

DRUGS (2)
  1. GILENYA [Suspect]
     Active Substance: FINGOLIMOD HYDROCHLORIDE
     Indication: RELAPSING-REMITTING MULTIPLE SCLEROSIS
     Dosage: 0.5 MG, QD
     Route: 048
     Dates: start: 20150206
  2. GILENYA [Suspect]
     Active Substance: FINGOLIMOD HYDROCHLORIDE
     Dosage: 0.5 MG, QOD
     Route: 048
     Dates: start: 20170515

REACTIONS (27)
  - Leukopenia [Unknown]
  - Temperature intolerance [Unknown]
  - Generalised erythema [Recovered/Resolved]
  - Lymphopenia [Recovering/Resolving]
  - Balance disorder [Unknown]
  - Muscle fatigue [Unknown]
  - Cognitive disorder [Unknown]
  - Stress [Unknown]
  - Gait disturbance [Not Recovered/Not Resolved]
  - Blister [Unknown]
  - Muscle spasticity [Unknown]
  - Urinary tract infection [Unknown]
  - Fatigue [Unknown]
  - Paraesthesia [Unknown]
  - Depression [Unknown]
  - Prescribed underdose [Unknown]
  - Nephrolithiasis [Unknown]
  - Insomnia [Unknown]
  - Confusional state [Unknown]
  - Central nervous system lesion [Unknown]
  - Micturition urgency [Unknown]
  - Memory impairment [Unknown]
  - Musculoskeletal stiffness [Unknown]
  - Pollakiuria [Unknown]
  - Fall [Unknown]
  - Concomitant disease aggravated [Not Recovered/Not Resolved]
  - Hypoaesthesia [Unknown]

NARRATIVE: CASE EVENT DATE: 20151113
